FAERS Safety Report 7547010-3 (Version None)
Quarter: 2011Q2

REPORT INFORMATION
  Report Type: 
  Country: None (occurrence: None)
  Receive Date: 20110607
  Receipt Date: 20110601
  Transmission Date: 20111010
  Serious: Yes (Death)
  Sender: FDA-Public Use
  Company Number: 2011SP025363

PATIENT
  Age: 30 Year
  Sex: Female

DRUGS (2)
  1. OXYCODONE HCL [Concomitant]
  2. SAPHRIS [Suspect]
     Indication: BIPOLAR DISORDER
     Dosage: 5 MG; BID; SL
     Route: 060
     Dates: end: 20110415

REACTIONS (1)
  - DEATH [None]
